FAERS Safety Report 10392391 (Version 2)
Quarter: 2014Q3

REPORT INFORMATION
  Report Type: Spontaneous
  Country: US (occurrence: None)
  Receive Date: 20140815
  Receipt Date: 20140902
  Transmission Date: 20150326
  Serious: Yes (Hospitalization)
  Sender: FDA-Public Use
  Company Number: 2014AP003816

PATIENT
  Age: 46 Year
  Sex: Male

DRUGS (10)
  1. DILANTIN [Concomitant]
     Active Substance: PHENYTOIN
  2. FERRIPROX [Suspect]
     Active Substance: DEFERIPRONE
     Indication: SICKLE CELL ANAEMIA
     Route: 048
     Dates: start: 20131104
  3. VITAMIN C [Concomitant]
     Active Substance: ASCORBIC ACID
  4. FOLIC ACID. [Concomitant]
     Active Substance: FOLIC ACID
  5. ZOLPIDEM TARTRATE ( ZOLPIDEM) [Concomitant]
  6. KEPPRA ( LEVETIRACETAM) [Concomitant]
  7. FISH OIL [Concomitant]
     Active Substance: FISH OIL
  8. RANITIDINE HYDROCHLORIDE ( RANITIDINE) TABLET [Concomitant]
  9. COD LIVER OIL (COD-LIVER OIL) [Concomitant]
  10. DILTIAZEM HYDROCHLORIDE ( DILTIAZEM) [Concomitant]

REACTIONS (2)
  - Blood glucose increased [None]
  - Renal impairment [None]
